FAERS Safety Report 5671132-5 (Version None)
Quarter: 2008Q1

REPORT INFORMATION
  Report Type: 
  Country: None (occurrence: None)
  Receive Date: 20080317
  Receipt Date: 20080317
  Transmission Date: 20080703
  Serious: Yes (Hospitalization)
  Sender: FDA-Public Use
  Company Number: None

PATIENT
  Age: 80 Year
  Sex: Male
  Weight: 85.28 kg

DRUGS (2)
  1. FUROSEMIDE [Suspect]
     Indication: HYPERTENSION
     Dosage: 40MG EVERY DAY PO
     Route: 048
     Dates: end: 20071130
  2. LISINOPRIL [Suspect]
     Indication: HYPERTENSION
     Dosage: 5MG EVERY DAY PO
     Route: 048
     Dates: end: 20071130

REACTIONS (1)
  - RENAL FAILURE ACUTE [None]
